FAERS Safety Report 6487706-8 (Version None)
Quarter: 2009Q4

REPORT INFORMATION
  Report Type: 
  Country: None (occurrence: None)
  Receive Date: 20091210
  Receipt Date: 20090824
  Transmission Date: 20100525
  Serious: No
  Sender: FDA-Public Use
  Company Number: US-AMGEN-KDL361447

PATIENT
  Sex: Male
  Weight: 110.8 kg

DRUGS (2)
  1. ENBREL [Suspect]
     Indication: PSORIATIC ARTHROPATHY
     Route: 058
     Dates: start: 20040201
  2. NAPROSYN [Concomitant]
     Dates: start: 20000101

REACTIONS (3)
  - FUNGAL INFECTION [None]
  - MELANOCYTIC NAEVUS [None]
  - RASH [None]
